FAERS Safety Report 23700320 (Version 3)
Quarter: 2025Q1

REPORT INFORMATION
  Report Type: Report from Study
  Country: US (occurrence: US)
  Receive Date: 20240403
  Receipt Date: 20250301
  Transmission Date: 20250408
  Serious: Yes (Other)
  Sender: ROCHE
  Company Number: US-ROCHE-3533251

PATIENT
  Age: 49 Year
  Sex: Male
  Weight: 91.9 kg

DRUGS (11)
  1. RITUXAN [Suspect]
     Active Substance: RITUXIMAB
     Indication: Product used for unknown indication
     Route: 042
  2. GAZYVA [Suspect]
     Active Substance: OBINUTUZUMAB
     Indication: Chronic lymphocytic leukaemia
     Route: 042
     Dates: end: 20240403
  3. GAZYVA [Suspect]
     Active Substance: OBINUTUZUMAB
     Indication: Chronic lymphocytic leukaemia
  4. VENCLEXTA [Concomitant]
     Active Substance: VENETOCLAX
     Dosage: THERAPY START DATE  26/MAR/2024
     Route: 048
  5. ZOVIRAX [Concomitant]
     Active Substance: ACYCLOVIR
  6. ZYLOPRIM [Concomitant]
     Active Substance: ALLOPURINOL
  7. COMPAZINE [Concomitant]
     Active Substance: PROCHLORPERAZINE MALEATE
  8. VITAMIN C [Concomitant]
     Active Substance: ASCORBIC ACID
  9. EPIPEN [Concomitant]
     Active Substance: EPINEPHRINE
  10. TESTOSTERONE [Concomitant]
     Active Substance: TESTOSTERONE
  11. ADDERALL [Concomitant]
     Active Substance: AMPHETAMINE ASPARTATE\AMPHETAMINE SULFATE\DEXTROAMPHETAMINE SACCHARATE\DEXTROAMPHETAMINE SULFATE

REACTIONS (8)
  - Anaphylactic reaction [Unknown]
  - Chest discomfort [Recovered/Resolved]
  - Nausea [Recovered/Resolved]
  - Flushing [Recovered/Resolved]
  - Dyspnoea [Recovered/Resolved]
  - Pharyngeal swelling [Recovered/Resolved]
  - Ear swelling [Recovered/Resolved]
  - Urticaria [Recovered/Resolved]

NARRATIVE: CASE EVENT DATE: 20180101
